FAERS Safety Report 5015775-0 (Version None)
Quarter: 2006Q2

REPORT INFORMATION
  Report Type: 
  Country: None (occurrence: None)
  Receive Date: 20060525
  Receipt Date: 20060510
  Transmission Date: 20061013
  Serious: Yes (Death)
  Sender: FDA-Public Use
  Company Number: 225340

PATIENT
  Age: 62 Year
  Sex: Female

DRUGS (3)
  1. HERCEPTIN [Suspect]
     Indication: BREAST CANCER
     Dosage: 231 MG, QD, INTRAVENOUS
     Route: 042
     Dates: start: 20050308, end: 20060308
  2. NAVELBINE [Concomitant]
  3. AREDIA [Concomitant]

REACTIONS (1)
  - CARDIAC FAILURE [None]
